FAERS Safety Report 7778599-7 (Version None)
Quarter: 2011Q3

REPORT INFORMATION
  Report Type: 
  Country: None (occurrence: None)
  Receive Date: 20110926
  Receipt Date: 20110914
  Transmission Date: 20111222
  Serious: Yes (Other)
  Sender: FDA-Public Use
  Company Number: JP-PFIZER INC-2011227079

PATIENT
  Age: 58 Year
  Sex: Male
  Weight: 67.2 kg

DRUGS (8)
  1. DOXAZOSIN MESYLATE [Concomitant]
     Indication: HYPERTENSION
     Dosage: UNK
     Route: 048
     Dates: start: 20110331
  2. AMLODIPINE [Concomitant]
     Indication: HYPERTENSION
     Dosage: UNK
     Route: 048
     Dates: start: 20100727
  3. ATORVASTATIN CALCIUM [Suspect]
     Indication: HYPERCHOLESTEROLAEMIA
     Dosage: 5 MG, 1X/DAY
     Route: 048
     Dates: start: 20101130, end: 20110330
  4. APIDRA [Concomitant]
     Indication: DIABETES MELLITUS
     Dosage: UNK
     Dates: start: 20091016
  5. LANTUS [Concomitant]
     Indication: DIABETES MELLITUS
     Dosage: UNK
     Dates: start: 20091016
  6. MICARDIS [Concomitant]
     Indication: HYPERTENSION
     Dosage: UNK
     Route: 048
     Dates: start: 20110331
  7. FUROSEMIDE [Concomitant]
     Indication: DIABETIC NEPHROPATHY
     Dosage: UNK
     Route: 048
     Dates: start: 20110408
  8. HYDROCHLOROTHIAZIDE AND TELMISARTAN [Concomitant]
     Indication: HYPERTENSION
     Dosage: UNK
     Route: 048
     Dates: start: 20100928, end: 20110330

REACTIONS (1)
  - DIABETIC NEPHROPATHY [None]
